FAERS Safety Report 15600465 (Version 1)
Quarter: 2018Q4

REPORT INFORMATION
  Report Type: Spontaneous
  Country: FR (occurrence: FR)
  Receive Date: 20181109
  Receipt Date: 20181109
  Transmission Date: 20190205
  Serious: Yes (Hospitalization)
  Sender: FDA-Public Use
  Company Number: FR-ALK-ABELLO A/S-2018AA003856

PATIENT

DRUGS (2)
  1. ACARIZAX 12 SQ-HDM [Suspect]
     Active Substance: DERMATOPHAGOIDES FARINAE\DERMATOPHAGOIDES PTERONYSSINUS
     Indication: RHINITIS ALLERGIC
     Dosage: UNK, QD
     Route: 048
     Dates: start: 20181008, end: 20181008
  2. NASONEX [Suspect]
     Active Substance: MOMETASONE FUROATE
     Indication: RHINITIS ALLERGIC
     Dosage: UNK
     Route: 055
     Dates: end: 20181011

REACTIONS (4)
  - Dyspnoea [Recovering/Resolving]
  - Respiratory distress [Recovered/Resolved]
  - Chest pain [Recovering/Resolving]
  - Pharyngeal paraesthesia [Recovered/Resolved]

NARRATIVE: CASE EVENT DATE: 20181008
